FAERS Safety Report 12144141 (Version 1)
Quarter: 2016Q1

REPORT INFORMATION
  Report Type: Spontaneous
  Country: US (occurrence: None)
  Receive Date: 20160303
  Receipt Date: 20160303
  Transmission Date: 20160526
  Serious: Yes (Other)
  Sender: FDA-Public Use
  Company Number: None

PATIENT
  Age: 46 Year
  Sex: Female
  Weight: 88.91 kg

DRUGS (1)
  1. MIRENA [Suspect]
     Active Substance: LEVONORGESTREL

REACTIONS (6)
  - Amenorrhoea [None]
  - Pain [None]
  - Cyst [None]
  - Affective disorder [None]
  - Alopecia [None]
  - Premature menopause [None]

NARRATIVE: CASE EVENT DATE: 20160302
